FAERS Safety Report 6082277-2 (Version None)
Quarter: 2009Q1

REPORT INFORMATION
  Report Type: 
  Country: None (occurrence: None)
  Receive Date: 20090218
  Receipt Date: 20090203
  Transmission Date: 20090719
  Serious: Yes (Other)
  Sender: FDA-Public Use
  Company Number: FR-GENENTECH-276742

PATIENT
  Age: 66 Year
  Sex: Female

DRUGS (4)
  1. LUCENTIS [Suspect]
     Indication: CHOROIDITIS
     Dosage: UNK
     Route: 031
     Dates: start: 20080401
  2. ATACAND [Concomitant]
     Indication: DRUG USE FOR UNKNOWN INDICATION
     Dosage: UNK
  3. PARACETAMOL [Concomitant]
     Indication: DRUG USE FOR UNKNOWN INDICATION
     Dosage: UNK
  4. ESCITALOPRAM [Concomitant]
     Indication: DRUG USE FOR UNKNOWN INDICATION
     Dosage: UNK

REACTIONS (1)
  - FATIGUE [None]
